FAERS Safety Report 17467926 (Version 1)
Quarter: 2020Q1

REPORT INFORMATION
  Report Type: Report from Study
  Country: US (occurrence: US)
  Receive Date: 20200227
  Receipt Date: 20200227
  Transmission Date: 20200409
  Serious: Yes (Death, Hospitalization, Other)
  Sender: FDA-Public Use
  Company Number: US-GLAXOSMITHKLINE-US2020GSK028366

PATIENT
  Age: 58 Year
  Sex: Male

DRUGS (5)
  1. ZANAMIVIR [Suspect]
     Active Substance: ZANAMIVIR
     Indication: INFLUENZA
     Dosage: 10 MG, BID
     Route: 055
  2. AZITHROMYCIN ANHYDROUS. [Suspect]
     Active Substance: AZITHROMYCIN ANHYDROUS
     Indication: PNEUMONIA
     Dosage: UNK
  3. ANTITHYMOCYTE GLOBULIN [Suspect]
     Active Substance: THYMOCYTE IMMUNE GLOBULIN NOS
     Indication: IMMUNOSUPPRESSION
     Dosage: UNK
  4. OSELTAMIVIR [Suspect]
     Active Substance: OSELTAMIVIR
     Indication: INFLUENZA
     Dosage: 75 MG, BID
     Route: 048
  5. SIROLIMUS. [Suspect]
     Active Substance: SIROLIMUS
     Indication: IMMUNOSUPPRESSION
     Dosage: UNK

REACTIONS (18)
  - Cough [Unknown]
  - Condition aggravated [Unknown]
  - Pyrexia [Unknown]
  - Drug ineffective [Unknown]
  - Pneumonia [Unknown]
  - Hypotension [Unknown]
  - Graft versus host disease [Unknown]
  - Influenza [Unknown]
  - Viral mutation identified [Unknown]
  - Hypoxia [Unknown]
  - Gastrointestinal haemorrhage [Unknown]
  - Death [Fatal]
  - Diarrhoea [Unknown]
  - Mental status changes [Unknown]
  - Pathogen resistance [Unknown]
  - Drug resistance [Unknown]
  - Lung infiltration [Unknown]
  - Therapy non-responder [Unknown]

NARRATIVE: CASE EVENT DATE: 201803
